FAERS Safety Report 6731736-5 (Version None)
Quarter: 2010Q2

REPORT INFORMATION
  Report Type: 
  Country: None (occurrence: None)
  Receive Date: 20100519
  Receipt Date: 20100508
  Transmission Date: 20101027
  Serious: Yes (Other)
  Sender: FDA-Public Use
  Company Number: VE-PFIZER INC-2010058644

PATIENT
  Age: 44 Year
  Sex: Female
  Weight: 65 kg

DRUGS (1)
  1. ZYVOX [Suspect]
     Indication: CELLULITIS
     Dosage: 1200 MG, 1X/DAY
     Route: 048

REACTIONS (3)
  - CHILLS [None]
  - HYPERTHERMIA [None]
  - MYALGIA [None]
